FAERS Safety Report 6139775-2 (Version None)
Quarter: 2009Q2

REPORT INFORMATION
  Report Type: 
  Country: None (occurrence: None)
  Receive Date: 20090401
  Receipt Date: 20090326
  Transmission Date: 20091009
  Serious: Yes (Other)
  Sender: FDA-Public Use
  Company Number: A0775364A

PATIENT
  Age: 45 Year
  Sex: Male

DRUGS (2)
  1. BUPROPION HCL [Suspect]
     Route: 065
  2. NO CONCURRENT MEDICATION [Concomitant]

REACTIONS (3)
  - AGGRESSION [None]
  - AGITATION [None]
  - MANIA [None]
